FAERS Safety Report 6924086-5 (Version None)
Quarter: 2010Q3

REPORT INFORMATION
  Report Type: 
  Country: None (occurrence: None)
  Receive Date: 20100813
  Receipt Date: 20100805
  Transmission Date: 20110219
  Serious: Yes (Hospitalization)
  Sender: FDA-Public Use
  Company Number: US-AMGEN-KDL288204

PATIENT
  Sex: Male

DRUGS (2)
  1. ENBREL [Suspect]
     Indication: RHEUMATOID ARTHRITIS
     Route: 058
     Dates: start: 20000720
  2. METHOTREXATE [Concomitant]
     Dates: start: 19980101

REACTIONS (5)
  - ARTHROPOD STING [None]
  - BRONCHITIS [None]
  - INGUINAL HERNIA [None]
  - RHEUMATOID ARTHRITIS [None]
  - UMBILICAL HERNIA [None]
